FAERS Safety Report 4910616-1 (Version None)
Quarter: 2006Q1

REPORT INFORMATION
  Report Type: 
  Country: None (occurrence: None)
  Receive Date: 20060214
  Receipt Date: 20060209
  Transmission Date: 20060701
  Serious: Yes (Life-Threatening)
  Sender: FDA-Public Use
  Company Number: IT-BOEHRINGER INGELHEIM PHARMACEUTICALS, INC.-2006-IT-00027IT

PATIENT
  Sex: Male

DRUGS (1)
  1. SPIRIVA [Suspect]
     Indication: BRONCHITIS ACUTE
     Dates: start: 20050603, end: 20050603

REACTIONS (3)
  - CYANOSIS [None]
  - DYSPNOEA [None]
  - WHEEZING [None]
